FAERS Safety Report 7636073-2 (Version None)
Quarter: 2011Q3

REPORT INFORMATION
  Report Type: 
  Country: None (occurrence: None)
  Receive Date: 20110719
  Receipt Date: 20110708
  Transmission Date: 20111222
  Serious: Yes (Hospitalization)
  Sender: FDA-Public Use
  Company Number: JP-2011-10669

PATIENT
  Age: 85 Year
  Sex: Male
  Weight: 36 kg

DRUGS (10)
  1. SELARA (EPLERENONE) [Concomitant]
  2. SOLOMUCO (AMBROXOL HYDROCHLORIDE) [Concomitant]
  3. PAXIL [Concomitant]
  4. MUCODYNE (CARBOCISTEINE) [Concomitant]
  5. SAMSCA [Suspect]
     Indication: CARDIAC FAILURE CONGESTIVE
     Dosage: 7.5 MG MILLIGRAM(S), QD, ORAL, 15 MG MILLIGRAM(S), QD, ORAL
     Route: 048
     Dates: start: 20110331, end: 20110403
  6. SAMSCA [Suspect]
     Indication: CARDIAC FAILURE CONGESTIVE
     Dosage: 7.5 MG MILLIGRAM(S), QD, ORAL, 15 MG MILLIGRAM(S), QD, ORAL
     Route: 048
     Dates: start: 20110404, end: 20110410
  7. RABEPRAZOLE SODIUM [Concomitant]
  8. PERINDOPRIL ERBUMINE [Concomitant]
  9. TORSEMIDE [Concomitant]
  10. LASIX [Concomitant]

REACTIONS (2)
  - SKIN EXFOLIATION [None]
  - TOXIC SKIN ERUPTION [None]
